FAERS Safety Report 8820670 (Version 1)
Quarter: 2012Q4

REPORT INFORMATION
  Report Type: Report from Study
  Country: US (occurrence: US)
  Receive Date: 20121002
  Receipt Date: 20121002
  Transmission Date: 20130627
  Serious: Yes (Other)
  Sender: FDA-Public Use
  Company Number: US-JNJFOC-20120911541

PATIENT

DRUGS (3)
  1. REMICADE [Suspect]
     Indication: COLITIS ULCERATIVE
     Route: 042
     Dates: start: 2012
  2. PREDNISONE [Concomitant]
  3. PREDNISONE [Concomitant]

REACTIONS (7)
  - Trismus [Unknown]
  - Vision blurred [Unknown]
  - Pyrexia [Recovered/Resolved]
  - Arthropathy [Unknown]
  - Arthralgia [Recovering/Resolving]
  - Myalgia [Recovering/Resolving]
  - Muscular weakness [Unknown]
